FAERS Safety Report 18610640 (Version 2)
Quarter: 2021Q2

REPORT INFORMATION
  Report Type: Report from Study
  Country: DE (occurrence: DE)
  Receive Date: 20201214
  Receipt Date: 20210602
  Transmission Date: 20210717
  Serious: Yes (Hospitalization, Other)
  Sender: FDA-Public Use
  Company Number: DE-MYLANLABS-2020M1100182

PATIENT

DRUGS (17)
  1. ARA?C [Suspect]
     Active Substance: CYTARABINE
     Dosage: 3000 MG/M2 EVERY 3 WEEKS (CYCLE 4 + 6, DAY 1?2)
     Route: 042
  2. ARA?C [Suspect]
     Active Substance: CYTARABINE
     Dosage: 10 MG, EVERY 2 WEEKS (CYCLE 5, DAY 5)
  3. PREDNISOLONE. [Suspect]
     Active Substance: PREDNISOLONE
     Dosage: 3 MG ICV, EVERY 3 WEEKS (CYCLE 4 + 6, DAY 3?5) WITH METHOTREXATE
  4. ACICLOVIR [Suspect]
     Active Substance: ACYCLOVIR
     Indication: PROPHYLAXIS
     Dosage: AT EACH CYCLE
     Route: 065
  5. METHOTREXATE. [Suspect]
     Active Substance: METHOTREXATE
     Indication: CENTRAL NERVOUS SYSTEM LYMPHOMA
     Dosage: 2.5 MILLIGRAM, EVERY 2 WEEKS (CYCLE 5, DAY 2?4 WITH PREDNISOLONE
  6. ARA?C [Suspect]
     Active Substance: CYTARABINE
     Indication: CENTRAL NERVOUS SYSTEM LYMPHOMA
     Dosage: 10 MG, EVERY 3 WEEKS (CYCLE 4 + 6, DAY 6)
  7. ACICLOVIR [Concomitant]
     Active Substance: ACYCLOVIR
     Indication: PROPHYLAXIS
     Dosage: UNK
     Route: 065
  8. MESNA. [Suspect]
     Active Substance: MESNA
     Indication: DRUG TOXICITY PROPHYLAXIS
     Dosage: ADMINISTERED WITH IFOSFAMIDE AS PROTECTION
  9. PREDNISOLONE. [Suspect]
     Active Substance: PREDNISOLONE
     Indication: CENTRAL NERVOUS SYSTEM LYMPHOMA
     Dosage: 3 MG ICV, EVERY 2 WEEKS (CYCLE 5, DAY 2?4) WITH METHOTREXATE
  10. METHOTREXATE. [Suspect]
     Active Substance: METHOTREXATE
     Indication: CENTRAL NERVOUS SYSTEM LYMPHOMA
     Dosage: 2.5 MILLIGRAM, EVERY 3 WEEKS (CYCLE 4 + 6, DAY 3?5) WITH PREDNISOLONE
  11. METHOTREXATE. [Suspect]
     Active Substance: METHOTREXATE
     Dosage: 4000 MG/M2, EVERY 2 WEEKS (CYCLE 1?3, DAY 1)
     Route: 042
  12. METHOTREXATE. [Suspect]
     Active Substance: METHOTREXATE
     Dosage: 4000 MG/M2, EVERY 2 WEEKS (CYCLE 5, DAY 1)
     Route: 042
  13. RITUXIMAB. [Suspect]
     Active Substance: RITUXIMAB
     Indication: CENTRAL NERVOUS SYSTEM LYMPHOMA
     Dosage: 375 MG/M2 EVERY 2 WEEKS (CYCLE 1?3, DAY 0)
     Route: 042
  14. G?CSF [Suspect]
     Active Substance: GRANULOCYTE COLONY-STIMULATING FACTOR NOS
     Indication: PROPHYLAXIS
     Dosage: AT EACH CYCLE
  15. IFOSFAMIDE. [Suspect]
     Active Substance: IFOSFAMIDE
     Indication: CENTRAL NERVOUS SYSTEM LYMPHOMA
     Dosage: 800 MG/M2, EVERY 2 WEEKS (CYCLE 1?3, DAY 2?4)
     Route: 042
  16. IFOSFAMIDE. [Suspect]
     Active Substance: IFOSFAMIDE
     Dosage: 800 MG/M2, EVERY 2 WEEKS (CYCLE 5, DAY 2?4)
     Route: 042
  17. SULFAMETHOXAZOLE W/TRIMETHOPRIM [Concomitant]
     Active Substance: SULFAMETHOXAZOLE\TRIMETHOPRIM
     Indication: PROPHYLAXIS
     Dosage: AT EACH CYCLE

REACTIONS (2)
  - Urinary tract infection staphylococcal [Unknown]
  - Urinary tract infection [Unknown]
